FAERS Safety Report 7030030-5 (Version None)
Quarter: 2010Q4

REPORT INFORMATION
  Report Type: 
  Country: None (occurrence: None)
  Receive Date: 20101006
  Receipt Date: 20100927
  Transmission Date: 20110411
  Serious: Yes (Other)
  Sender: FDA-Public Use
  Company Number: US-BAYER-201035259NA

PATIENT
  Age: 42 Year
  Sex: Male

DRUGS (3)
  1. CAMPATH [Suspect]
     Indication: CHRONIC LYMPHOCYTIC LEUKAEMIA
     Dates: start: 20100913
  2. CAMPATH [Suspect]
     Dates: start: 20100901
  3. CAMPATH [Suspect]
     Dates: start: 20100901

REACTIONS (1)
  - HEPATIC ENZYME INCREASED [None]
